FAERS Safety Report 6767292-5 (Version None)
Quarter: 2010Q2

REPORT INFORMATION
  Report Type: 
  Country: None (occurrence: None)
  Receive Date: 20100610
  Receipt Date: 20100527
  Transmission Date: 20101027
  Serious: Yes (Other)
  Sender: FDA-Public Use
  Company Number: 201005AGG00935

PATIENT
  Age: 38 Year
  Sex: Male

DRUGS (6)
  1. TIROFIBAN HYDROCHLORIDE [Suspect]
     Indication: MYOCARDIAL INFARCTION
     Dosage: (INTRAVENOUS (NOT OTHERWISE SPECIFIED))
     Route: 042
  2. HEPARIN [Suspect]
     Indication: MYOCARDIAL INFARCTION
  3. ASPIRIN [Suspect]
  4. CLOPIDOGREL BISULFATE [Suspect]
     Indication: MYOCARDIAL INFARCTION
  5. SIMVASTATIN [Suspect]
     Indication: MYOCARDIAL INFARCTION
  6. ATENOLOL [Suspect]
     Indication: MYOCARDIAL INFARCTION

REACTIONS (12)
  - ANTIPHOSPHOLIPID SYNDROME [None]
  - APHASIA [None]
  - BUNDLE BRANCH BLOCK RIGHT [None]
  - CEREBRAL HAEMATOMA [None]
  - CORONARY ARTERY THROMBOSIS [None]
  - DISEASE RECURRENCE [None]
  - FALL [None]
  - INJECTION SITE HAEMORRHAGE [None]
  - LOSS OF CONSCIOUSNESS [None]
  - PULMONARY EMBOLISM [None]
  - THROMBOSIS IN DEVICE [None]
  - VENTRICULAR FIBRILLATION [None]
